FAERS Safety Report 8208252-7 (Version None)
Quarter: 2012Q1

REPORT INFORMATION
  Report Type: 
  Country: None (occurrence: None)
  Receive Date: 20120314
  Receipt Date: 20120308
  Transmission Date: 20120608
  Serious: Yes (Hospitalization, Other)
  Sender: FDA-Public Use
  Company Number: PHEH2010US03714

PATIENT
  Sex: Male

DRUGS (10)
  1. ZOMETA [Suspect]
     Route: 042
  2. KEFLEX [Concomitant]
  3. IBUPROFEN [Concomitant]
  4. EFFEXOR [Concomitant]
  5. LUPRON [Concomitant]
  6. MEPERGAN [Concomitant]
  7. FENTANYL [Concomitant]
     Dosage: 75 MG, UNK
  8. ELAVIL [Concomitant]
     Dosage: 50 MG, UNK
  9. LORTAB [Concomitant]
  10. CEPHALEXIN [Concomitant]

REACTIONS (63)
  - METASTASES TO BONE [None]
  - INTERVERTEBRAL DISC PROTRUSION [None]
  - BONE PAIN [None]
  - PAIN [None]
  - DEFORMITY [None]
  - DECREASED INTEREST [None]
  - FISTULA [None]
  - TOOTH LOSS [None]
  - SLEEP APNOEA SYNDROME [None]
  - OSTEOARTHRITIS [None]
  - NIGHT SWEATS [None]
  - PROSTATE CANCER METASTATIC [None]
  - DYSPHAGIA [None]
  - HYPOAESTHESIA [None]
  - PARAESTHESIA [None]
  - EXPOSED BONE IN JAW [None]
  - EAR PAIN [None]
  - NEPHROLITHIASIS [None]
  - MUSCLE SPASMS [None]
  - OSTEONECROSIS OF JAW [None]
  - DEPRESSION [None]
  - SINUSITIS [None]
  - SPINAL CORD NEOPLASM [None]
  - SQUAMOUS CELL CARCINOMA [None]
  - BENIGN COLONIC NEOPLASM [None]
  - ORAL INFECTION [None]
  - ANXIETY [None]
  - URINARY TRACT INFECTION [None]
  - LYMPHADENOPATHY [None]
  - JOINT EFFUSION [None]
  - DEHYDRATION [None]
  - OEDEMA PERIPHERAL [None]
  - DIVERTICULUM [None]
  - EYE INJURY [None]
  - GASTROOESOPHAGEAL REFLUX DISEASE [None]
  - LUMBAR RADICULOPATHY [None]
  - HAEMATOCHEZIA [None]
  - NAUSEA [None]
  - EXOSTOSIS [None]
  - AORTIC ARTERIOSCLEROSIS [None]
  - HEADACHE [None]
  - ABDOMINAL PAIN [None]
  - METASTASES TO BONE MARROW [None]
  - FIBROMYALGIA [None]
  - MENISCUS LESION [None]
  - HAEMORRHOIDS [None]
  - INSOMNIA [None]
  - NECK MASS [None]
  - BACK PAIN [None]
  - CONSTIPATION [None]
  - VOMITING [None]
  - OSTEITIS DEFORMANS [None]
  - DYSPEPSIA [None]
  - STRESS [None]
  - FLUSHING [None]
  - EMBOLISM VENOUS [None]
  - OSTEOMYELITIS [None]
  - LUMBAR SPINAL STENOSIS [None]
  - SKIN PAPILLOMA [None]
  - BENIGN ANORECTAL NEOPLASM [None]
  - CARDIAC MURMUR [None]
  - SWELLING [None]
  - HOT FLUSH [None]
